FAERS Safety Report 20980870 (Version 1)
Quarter: 2022Q2

REPORT INFORMATION
  Report Type: Spontaneous
  Country: CN (occurrence: CN)
  Receive Date: 20220620
  Receipt Date: 20220620
  Transmission Date: 20220721
  Serious: Yes (Hospitalization)
  Sender: FDA-Public Use
  Company Number: None

PATIENT
  Age: 66 Year
  Sex: Male

DRUGS (17)
  1. CYCLOPHOSPHAMIDE [Suspect]
     Active Substance: CYCLOPHOSPHAMIDE
     Indication: Diffuse large B-cell lymphoma
     Dosage: UNK, QD, 1-7 CYCLES OF R2-CHOP CHEMOTHERAPY
     Route: 041
  2. CYCLOPHOSPHAMIDE [Suspect]
     Active Substance: CYCLOPHOSPHAMIDE
     Dosage: 1 G, QD, INJECTION, 8TH CYCLE OF R2-CHOP CHEMOTHERAPY
     Route: 041
     Dates: start: 20211022, end: 20211022
  3. CYCLOPHOSPHAMIDE [Suspect]
     Active Substance: CYCLOPHOSPHAMIDE
     Dosage: UNK, QD, DOSE RE-INTRODUCED
     Route: 041
  4. RITUXIMAB [Suspect]
     Active Substance: RITUXIMAB
     Indication: Diffuse large B-cell lymphoma
     Dosage: UNK, QD,1-7 CYCLES OF R2-CHOP CHEMOTHERAPY
     Route: 041
  5. RITUXIMAB [Suspect]
     Active Substance: RITUXIMAB
     Dosage: 650 MG, QD, , 8TH CYCLE OF R2-CHOP CHEMOTHERAPY
     Route: 041
     Dates: start: 20211021, end: 20211021
  6. RITUXIMAB [Suspect]
     Active Substance: RITUXIMAB
     Dosage: UNK, QD,DOSE RE-INTRODUCED.
     Route: 041
  7. LENALIDOMIDE [Suspect]
     Active Substance: LENALIDOMIDE
     Indication: Diffuse large B-cell lymphoma
     Dosage: UNK, QD,1-7 CYCLES OF R2-CHOP CHEMOTHERAPY.
     Route: 048
  8. LENALIDOMIDE [Suspect]
     Active Substance: LENALIDOMIDE
     Dosage: 25 MG, QD, , 8TH CYCLE OF R2-CHOP CHEMOTHERAPY
     Route: 048
     Dates: start: 20211022, end: 20211028
  9. LENALIDOMIDE [Suspect]
     Active Substance: LENALIDOMIDE
     Dosage: UNK, QD, DOSE RE-INTRODUCED
     Route: 048
  10. VINDESINE SULFATE [Suspect]
     Active Substance: VINDESINE SULFATE
     Indication: Diffuse large B-cell lymphoma
     Dosage: UNK, QD,1-7 CYCLES OF R2-CHOP CHEMOTHERAPY
     Route: 041
  11. VINDESINE SULFATE [Suspect]
     Active Substance: VINDESINE SULFATE
     Dosage: 4 MG, QD,8TH CYCLE OF R2-CHOP CHEMOTHERAPY
     Route: 041
     Dates: start: 20211022, end: 20211022
  12. VINDESINE SULFATE [Suspect]
     Active Substance: VINDESINE SULFATE
     Dosage: UNK, QD,DOSE RE-INTRODUCED
     Route: 041
  13. DOXORUBICIN HYDROCHLORIDE [Suspect]
     Active Substance: DOXORUBICIN HYDROCHLORIDE
     Indication: Diffuse large B-cell lymphoma
     Dosage: UNK, QD,1-7 CYCLES OF R2-CHOP CHEMOTHERAPY
     Route: 041
  14. DOXORUBICIN HYDROCHLORIDE [Suspect]
     Active Substance: DOXORUBICIN HYDROCHLORIDE
     Dosage: 40 MG, QD, 8TH CYCLE OF R2-CHOP CHEMOTHERAPY
     Route: 041
     Dates: start: 20211022, end: 20211022
  15. DOXORUBICIN HYDROCHLORIDE [Suspect]
     Active Substance: DOXORUBICIN HYDROCHLORIDE
     Dosage: UNK, QD,DOSE RE-INTRODUCED
     Route: 041
  16. PREDNISONE [Suspect]
     Active Substance: PREDNISONE
     Indication: Diffuse large B-cell lymphoma
     Dosage: UNK, QD,1-7 CYCLES OF R2-CHOP CHEMOTHERAPY
     Route: 041
  17. PREDNISONE [Suspect]
     Active Substance: PREDNISONE
     Dosage: 100 MG, QD, D1-D5, 8TH CYCLE OF R2-CHOP CHEMOTHERAPY
     Route: 041

REACTIONS (4)
  - Abdominal pain upper [Recovering/Resolving]
  - Nausea [Recovering/Resolving]
  - Vomiting [Recovering/Resolving]
  - Feeding disorder [Recovered/Resolved]

NARRATIVE: CASE EVENT DATE: 20211030
